FAERS Safety Report 24529962 (Version 2)
Quarter: 2024Q4

REPORT INFORMATION
  Report Type: Spontaneous
  Country: US (occurrence: US)
  Receive Date: 20241021
  Receipt Date: 20241029
  Transmission Date: 20250115
  Serious: Yes (Other)
  Sender: PFIZER
  Company Number: US-PFIZER INC-202400279428

PATIENT
  Sex: Male

DRUGS (1)
  1. XELJANZ XR [Suspect]
     Active Substance: TOFACITINIB CITRATE
     Dosage: 11 MG

REACTIONS (6)
  - Pneumonia [Not Recovered/Not Resolved]
  - Ear infection [Not Recovered/Not Resolved]
  - Intentional dose omission [Unknown]
  - Malaise [Unknown]
  - Vomiting [Unknown]
  - Pain [Unknown]
